FAERS Safety Report 5366462-0 (Version None)
Quarter: 2007Q2

REPORT INFORMATION
  Report Type: 
  Country: None (occurrence: None)
  Receive Date: 20070622
  Receipt Date: 20070612
  Transmission Date: 20071010
  Serious: Yes (Hospitalization, Other)
  Sender: FDA-Public Use
  Company Number: GB-JNJFOC-20070602902

PATIENT
  Sex: Male
  Weight: 73 kg

DRUGS (5)
  1. REMICADE [Suspect]
     Indication: RHEUMATOID ARTHRITIS
     Route: 042
  2. METHOTREXATE [Concomitant]
  3. CO-PROXAMOL [Concomitant]
  4. FOLIC ACID [Concomitant]
  5. NAPROXEN [Concomitant]

REACTIONS (1)
  - OESOPHAGEAL ADENOCARCINOMA [None]
